FAERS Safety Report 8800432 (Version 2)
Quarter: 2012Q4

REPORT INFORMATION
  Report Type: 
  Country: US (occurrence: US)
  Receive Date: 20120921
  Receipt Date: 20121003
  Transmission Date: 20130627
  Serious: Yes (Disabling, Other)
  Sender: FDA-Public Use
  Company Number: CHPA2012US020169

PATIENT
  Age: 78 Year
  Sex: Female

DRUGS (2)
  1. VOLTAREN GEL [Suspect]
     Dosage: Unk, Unk
     Route: 061
  2. ALLERGY MEDICATION [Concomitant]
     Dosage: UNK
     Dates: start: 201202

REACTIONS (8)
  - Bedridden [Not Recovered/Not Resolved]
  - Dementia [Not Recovered/Not Resolved]
  - Wound [Not Recovered/Not Resolved]
  - Confusional state [Not Recovered/Not Resolved]
  - Feeling abnormal [Not Recovered/Not Resolved]
  - Wrong technique in drug usage process [Unknown]
  - Drug administered at inappropriate site [Unknown]
  - Overdose [None]
